FAERS Safety Report 19295279 (Version 1)
Quarter: 2021Q2

REPORT INFORMATION
  Report Type: Spontaneous
  Country: US (occurrence: US)
  Receive Date: 20210524
  Receipt Date: 20210524
  Transmission Date: 20210717
  Serious: Yes (Life-Threatening, Other)
  Sender: FDA-Public Use
  Company Number: US-UPSHER-SMITH LABORATORIES, LLC-2021USL00385

PATIENT
  Age: 24 Year
  Sex: Male

DRUGS (6)
  1. METHOHEXITAL [Concomitant]
     Active Substance: METHOHEXITAL
     Dosage: 120 MG (1.5 MG/KG)
     Route: 065
  2. REMIFENTANIL [Suspect]
     Active Substance: REMIFENTANIL
     Indication: ANAESTHESIA
     Dosage: 200 ?G
     Route: 065
  3. SUCCINYLCHOLINE [Concomitant]
     Active Substance: SUCCINYLCHOLINE
     Dosage: 100 MG (1.2 MG/KG)
     Route: 065
  4. METHOHEXITAL [Concomitant]
     Active Substance: METHOHEXITAL
     Dosage: 40 MG
     Route: 065
  5. SUCCINYLCHOLINE [Concomitant]
     Active Substance: SUCCINYLCHOLINE
     Dosage: 100 UNK
     Route: 065
  6. TESTOSTERONE. [Suspect]
     Active Substance: TESTOSTERONE
     Indication: TRANSGENDER HORMONAL THERAPY
     Dosage: UNK, 1X/WEEK
     Route: 065

REACTIONS (3)
  - Drug interaction [Recovered/Resolved]
  - Cardiac arrest [Recovered/Resolved]
  - Bradycardia [Recovered/Resolved]
